FAERS Safety Report 17484672 (Version 8)
Quarter: 2022Q2

REPORT INFORMATION
  Report Type: Report from Study
  Country: FR (occurrence: FR)
  Receive Date: 20200302
  Receipt Date: 20220503
  Transmission Date: 20220721
  Serious: Yes (Hospitalization, Other)
  Sender: FDA-Public Use
  Company Number: NVSC2020FR056615

PATIENT
  Age: 84 Year
  Sex: Male
  Weight: 62 kg

DRUGS (3)
  1. TACROLIMUS [Suspect]
     Active Substance: TACROLIMUS
     Indication: Renal transplant
     Dosage: 5 MG, UNKNOWN
     Route: 048
     Dates: start: 20191025
  2. TACROLIMUS [Suspect]
     Active Substance: TACROLIMUS
     Dosage: 2 MG, UNKNOWN
     Route: 048
  3. TACROLIMUS [Suspect]
     Active Substance: TACROLIMUS
     Dosage: 4 MG, QD
     Route: 048

REACTIONS (18)
  - Bacteraemia [Recovered/Resolved]
  - Bacteriuria [Recovered/Resolved]
  - Pyrexia [Recovered/Resolved]
  - Toxicity to various agents [Recovered/Resolved]
  - Haematuria [Recovered/Resolved]
  - Urinary retention [Recovered/Resolved]
  - Pyelocaliectasis [Recovered/Resolved]
  - Clostridium difficile colitis [Recovered/Resolved]
  - Anti-neutrophil cytoplasmic antibody positive vasculitis [Recovered/Resolved]
  - Leukopenia [Recovered/Resolved]
  - Leukopenia [Recovered/Resolved]
  - Pulmonary oedema [Recovered/Resolved]
  - Transplant rejection [Recovered/Resolved]
  - Urinary tract infection [Recovered/Resolved]
  - Anaemia [Recovering/Resolving]
  - Dysuria [Recovering/Resolving]
  - Pollakiuria [Recovering/Resolving]
  - Cytomegalovirus infection reactivation [Recovered/Resolved]

NARRATIVE: CASE EVENT DATE: 20191026
